FAERS Safety Report 19145434 (Version 1)
Quarter: 2021Q2

REPORT INFORMATION
  Report Type: Other
  Country: NL (occurrence: NL)
  Receive Date: 20210416
  Receipt Date: 20210416
  Transmission Date: 20210717
  Serious: Yes (Hospitalization)
  Sender: FDA-Public Use
  Company Number: NL-ASPEN-GLO2020NL007181

PATIENT

DRUGS (17)
  1. COTRIMOXAZOLE [Concomitant]
     Active Substance: SULFAMETHOXAZOLE\TRIMETHOPRIM
     Indication: INFECTION PROPHYLAXIS
     Dosage: 500 MILLIGRAM
     Route: 048
     Dates: start: 20190719, end: 20200615
  2. PREGABALIN. [Concomitant]
     Active Substance: PREGABALIN
     Indication: BONE LESION
     Dosage: 150 MILLIGRAM
     Route: 065
     Dates: start: 2019
  3. RIVAROXABAN [Concomitant]
     Active Substance: RIVAROXABAN
     Indication: CEREBROVASCULAR ACCIDENT
     Dosage: 20 MILLIGRAM
     Route: 065
     Dates: start: 20190904
  4. BACTRIM [Concomitant]
     Active Substance: SULFAMETHOXAZOLE\TRIMETHOPRIM
     Indication: INFECTION PROPHYLAXIS
     Route: 065
  5. LENALIDOMIDE [Suspect]
     Active Substance: LENALIDOMIDE
     Indication: PLASMA CELL MYELOMA
     Route: 048
  6. THIAMINE. [Concomitant]
     Active Substance: THIAMINE
     Indication: PRODUCT USED FOR UNKNOWN INDICATION
     Dosage: 50 MILLIGRAM
     Route: 048
     Dates: start: 20200114
  7. BORTEZOMIB. [Concomitant]
     Active Substance: BORTEZOMIB
     Dosage: 2.5 MG
     Route: 058
  8. BORTEZOMIB. [Concomitant]
     Active Substance: BORTEZOMIB
     Dosage: 1.9 MG
     Route: 058
     Dates: start: 20191011, end: 20191021
  9. BORTEZOMIB. [Concomitant]
     Active Substance: BORTEZOMIB
     Indication: PLASMA CELL MYELOMA
     Dosage: 1.9 MG
     Route: 058
  10. DEXAMETHASONE. [Suspect]
     Active Substance: DEXAMETHASONE
     Dosage: 40 MG
     Route: 041
     Dates: start: 20190719, end: 20200602
  11. DARATUMUMAB [Concomitant]
     Active Substance: DARATUMUMAB
     Indication: PLASMA CELL MYELOMA
     Route: 058
  12. DEXAMETHASONE. [Suspect]
     Active Substance: DEXAMETHASONE
     Indication: PLASMA CELL MYELOMA
     Dosage: 40 MG
     Route: 048
  13. DEXAMETHASONE. [Suspect]
     Active Substance: DEXAMETHASONE
     Dosage: 40 MG
     Route: 041
  14. LENALIDOMIDE [Suspect]
     Active Substance: LENALIDOMIDE
     Dosage: 10 MG
     Route: 048
     Dates: start: 20190719, end: 20200623
  15. DARATUMUMAB [Concomitant]
     Active Substance: DARATUMUMAB
     Dosage: 1800 UNK
     Route: 058
     Dates: start: 20190719, end: 20200602
  16. BORTEZOMIB. [Concomitant]
     Active Substance: BORTEZOMIB
     Dosage: 2.5 MG
     Route: 058
     Dates: start: 20190719, end: 20190923
  17. DEXAMETHASONE. [Suspect]
     Active Substance: DEXAMETHASONE
     Dosage: 40 UNK
     Route: 048
     Dates: start: 20190720, end: 20200515

REACTIONS (1)
  - Erythrodermic atopic dermatitis [Recovered/Resolved]

NARRATIVE: CASE EVENT DATE: 20200615
